FAERS Safety Report 8191786-1 (Version None)
Quarter: 2012Q1

REPORT INFORMATION
  Report Type: 
  Country: None (occurrence: None)
  Receive Date: 20120307
  Receipt Date: 20120220
  Transmission Date: 20120608
  Serious: Yes (Other)
  Sender: FDA-Public Use
  Company Number: CHPA2012US003356

PATIENT
  Age: 60 Year
  Sex: Female

DRUGS (4)
  1. ANTIHYPERTENSIVES [Concomitant]
     Indication: HYPERTENSION
     Dosage: UNK, UNK
  2. NEXIUM [Concomitant]
     Indication: GASTROOESOPHAGEAL REFLUX DISEASE
     Dosage: UNK, UNK
     Route: 048
  3. DRUG USED IN DIABETES [Concomitant]
     Indication: DIABETES MELLITUS
     Dosage: UNK, UNK
  4. BENEFIBER W/ WHEAT DEXTRIN [Suspect]
     Indication: CONSTIPATION
     Dosage: 2 TSP, BID
     Route: 048
     Dates: start: 20120217, end: 20120219

REACTIONS (6)
  - RECTAL TENESMUS [None]
  - DEFAECATION URGENCY [None]
  - THERAPEUTIC RESPONSE UNEXPECTED [None]
  - RECTAL HAEMORRHAGE [None]
  - PAINFUL DEFAECATION [None]
  - OFF LABEL USE [None]
